FAERS Safety Report 10055954 (Version 1)
Quarter: 2014Q2

REPORT INFORMATION
  Report Type: Spontaneous
  Country: US (occurrence: US)
  Receive Date: 20140403
  Receipt Date: 20140403
  Transmission Date: 20141212
  Serious: No
  Sender: FDA-Public Use
  Company Number: US-PFIZER INC-2014090002

PATIENT
  Age: 34 Year
  Sex: Male

DRUGS (7)
  1. PROTONIX [Suspect]
     Dosage: UNK
  2. AMOXICILLIN [Suspect]
     Dosage: UNK
  3. ALBUTEROL SULFATE [Suspect]
     Dosage: UNK
  4. HYDROCODONE [Suspect]
     Dosage: UNK
  5. PRILOSEC [Suspect]
     Dosage: UNK
  6. RANITIDINE [Suspect]
     Dosage: UNK
  7. SINGULAIR [Suspect]
     Dosage: UNK

REACTIONS (1)
  - Drug hypersensitivity [Unknown]
